FAERS Safety Report 10427906 (Version 1)
Quarter: 2014Q3

REPORT INFORMATION
  Report Type: Other
  Country: PR (occurrence: PR)
  Receive Date: 20140903
  Receipt Date: 20140903
  Transmission Date: 20150326
  Serious: Yes (Other)
  Sender: FDA-Public Use
  Company Number: PR-GE HEALTHCARE MEDICAL DIAGNOSTICS-OMPQ-PR-1408S-1047

PATIENT
  Age: 49 Year
  Sex: Female

DRUGS (1)
  1. OMNIPAQUE [Suspect]
     Active Substance: IOHEXOL
     Indication: PAIN
     Route: 042
     Dates: start: 20140821, end: 20140821

REACTIONS (2)
  - Peripheral swelling [Recovered/Resolved]
  - Pruritus [Recovered/Resolved]

NARRATIVE: CASE EVENT DATE: 201408
